FAERS Safety Report 6566029-2 (Version None)
Quarter: 2010Q1

REPORT INFORMATION
  Report Type: 
  Country: None (occurrence: None)
  Receive Date: 20100202
  Receipt Date: 20100128
  Transmission Date: 20100710
  Serious: Yes (Hospitalization, Other)
  Sender: FDA-Public Use
  Company Number: US-BRISTOL-MYERS SQUIBB COMPANY-14892285

PATIENT
  Age: 81 Year
  Sex: Male
  Weight: 94 kg

DRUGS (1)
  1. IXABEPILONE [Suspect]
     Indication: B-CELL LYMPHOMA
     Dosage: 20 MG/M2 IV OVER 1 HOUR ON DAYS 1,8, AND 15 EVERY 28 DAYS. DELAYED 14 DAYS.LAST DOSE:10NOV09
     Route: 042
     Dates: start: 20091006, end: 20091209

REACTIONS (7)
  - ATAXIA [None]
  - DECREASED APPETITE [None]
  - DEHYDRATION [None]
  - DIARRHOEA [None]
  - FATIGUE [None]
  - NEUTROPHIL COUNT DECREASED [None]
  - WHITE BLOOD CELL COUNT DECREASED [None]
